FAERS Safety Report 10302065 (Version 1)
Quarter: 2014Q3

REPORT INFORMATION
  Report Type: Spontaneous
  Country: US (occurrence: None)
  Receive Date: 20140710
  Receipt Date: 20140710
  Transmission Date: 20150326
  Serious: Yes (Death)
  Sender: FDA-Public Use
  Company Number: None

PATIENT
  Age: 26 Year
  Sex: Female
  Weight: 58.97 kg

DRUGS (1)
  1. IMPLANON [Suspect]
     Active Substance: ETONOGESTREL
     Indication: CONTRACEPTION

REACTIONS (10)
  - Depression [None]
  - Personality change [None]
  - Emotional disorder [None]
  - Panic attack [None]
  - Device dislocation [None]
  - Pain [None]
  - Mood swings [None]
  - Device difficult to use [None]
  - Quality of life decreased [None]
  - Product quality issue [None]
